FAERS Safety Report 6385237-7 (Version None)
Quarter: 2009Q4

REPORT INFORMATION
  Report Type: 
  Country: None (occurrence: None)
  Receive Date: 20091002
  Receipt Date: 20090203
  Transmission Date: 20100525
  Serious: No
  Sender: FDA-Public Use
  Company Number: US-ASTRAZENECA-2008UW09803

PATIENT
  Age: 55 Year
  Sex: Female
  Weight: 86.2 kg

DRUGS (2)
  1. ARIMIDEX [Suspect]
     Indication: BREAST CANCER FEMALE
     Route: 048
  2. XANAX [Concomitant]

REACTIONS (5)
  - BONE PAIN [None]
  - ILL-DEFINED DISORDER [None]
  - JOINT STIFFNESS [None]
  - MOOD SWINGS [None]
  - OROPHARYNGEAL PAIN [None]
